FAERS Safety Report 9177364 (Version 1)
Quarter: 2013Q1

REPORT INFORMATION
  Report Type: Spontaneous
  Country: ES (occurrence: ES)
  Receive Date: 20130321
  Receipt Date: 20130321
  Transmission Date: 20140127
  Serious: Yes (Death)
  Sender: FDA-Public Use
  Company Number: ES-TEVA-391911ISR

PATIENT
  Sex: 0

DRUGS (4)
  1. SILDENAFIL [Suspect]
     Indication: NONKETOTIC HYPERGLYCINAEMIA
     Route: 048
  2. NITRIC OXIDE [Suspect]
     Indication: NONKETOTIC HYPERGLYCINAEMIA
     Route: 055
  3. BOSENTAN [Suspect]
     Indication: NONKETOTIC HYPERGLYCINAEMIA
     Route: 065
  4. EPOPROSTENOL [Suspect]
     Indication: NONKETOTIC HYPERGLYCINAEMIA
     Route: 055

REACTIONS (3)
  - Pulmonary oedema [Fatal]
  - Fibrosis [Fatal]
  - Leukoencephalopathy [Fatal]
